FAERS Safety Report 4582795-X (Version None)
Quarter: 2005Q1

REPORT INFORMATION
  Report Type: 
  Country: None (occurrence: None)
  Receive Date: 20050215
  Receipt Date: 20050203
  Transmission Date: 20050727
  Serious: Yes (Hospitalization)
  Sender: FDA-Public Use
  Company Number: GB-GLAXOSMITHKLINE-B0370063A

PATIENT
  Sex: Female

DRUGS (1)
  1. SEROXAT [Suspect]
     Route: 065

REACTIONS (13)
  - ASTHENIA [None]
  - BALANCE DISORDER [None]
  - BLINDNESS [None]
  - DRUG DEPENDENCE [None]
  - DRUG WITHDRAWAL SYNDROME [None]
  - FATIGUE [None]
  - ILL-DEFINED DISORDER [None]
  - MUSCLE SPASMS [None]
  - PAIN [None]
  - PRE-EXISTING DISEASE [None]
  - REGURGITATION OF FOOD [None]
  - TREMOR [None]
  - WEIGHT INCREASED [None]
